FAERS Safety Report 23647667 (Version 1)
Quarter: 2024Q1

REPORT INFORMATION
  Report Type: Spontaneous
  Country: US (occurrence: None)
  Receive Date: 20240318
  Receipt Date: 20240318
  Transmission Date: 20240410
  Serious: Yes (Disabling)
  Sender: FDA-Public Use
  Company Number: None

PATIENT
  Age: 76 Year
  Sex: Female
  Weight: 57.15 kg

DRUGS (2)
  1. RUBRACA [Suspect]
     Active Substance: RUCAPARIB CAMSYLATE
     Dosage: 200 MG TWICE A DAY ORAL ?
     Route: 048
     Dates: start: 20220701, end: 20231127
  2. RUBRACA [Concomitant]
     Active Substance: RUCAPARIB CAMSYLATE
     Dates: start: 20220701, end: 20231127

REACTIONS (1)
  - Myelodysplastic syndrome [None]

NARRATIVE: CASE EVENT DATE: 20240312
